FAERS Safety Report 24076719 (Version 2)
Quarter: 2025Q1

REPORT INFORMATION
  Report Type: Spontaneous
  Country: DE (occurrence: DE)
  Receive Date: 20240711
  Receipt Date: 20250224
  Transmission Date: 20250408
  Serious: Yes (Life-Threatening)
  Sender: AMGEN
  Company Number: DE-AMGEN-USASP2024134254

PATIENT
  Age: 17 Year
  Sex: Female
  Weight: 62.993 kg

DRUGS (7)
  1. BLINATUMOMAB [Suspect]
     Active Substance: BLINATUMOMAB
     Indication: B precursor type acute leukaemia
     Dosage: 15 MICROGRAM/SQ. METER, QD
     Route: 042
     Dates: start: 20240618
  2. BESPONSA [Suspect]
     Active Substance: INOTUZUMAB OZOGAMICIN
     Indication: B precursor type acute leukaemia
     Dosage: 1.5 MILLIGRAM, QWK
     Route: 042
     Dates: start: 20240422, end: 20240422
  3. BESPONSA [Suspect]
     Active Substance: INOTUZUMAB OZOGAMICIN
     Dosage: 0.9 MILLIGRAM, QWK
     Route: 042
     Dates: start: 20240429, end: 20240506
  4. METHOTREXATE [Concomitant]
     Active Substance: METHOTREXATE
     Indication: Acute lymphocytic leukaemia recurrent
     Route: 029
     Dates: start: 20240618
  5. ACYCLOVIR [Concomitant]
     Active Substance: ACYCLOVIR
     Indication: Precursor B-lymphoblastic lymphoma
     Route: 048
     Dates: start: 20240506
  6. LORAZEPAM [Concomitant]
     Active Substance: LORAZEPAM
     Dates: start: 20240619, end: 20240619
  7. MEROPENEM [Concomitant]
     Active Substance: MEROPENEM
     Dates: start: 20240619, end: 20240619

REACTIONS (1)
  - Loss of consciousness [Recovered/Resolved]

NARRATIVE: CASE EVENT DATE: 20240619
